FAERS Safety Report 9890719 (Version 1)
Quarter: 2014Q1

REPORT INFORMATION
  Report Type: Spontaneous
  Country: DE (occurrence: None)
  Receive Date: 20140210
  Receipt Date: 20140210
  Transmission Date: 20141002
  Serious: Yes (Congenital Anomaly, Other)
  Sender: FDA-Public Use
  Company Number: AUR-APL-2014-01320

PATIENT
  Age: 1 Day
  Sex: Female
  Weight: 3.9 kg

DRUGS (2)
  1. MIRTAZAPINE [Suspect]
     Indication: SLEEP DISORDER
     Dosage: 7.5 MG, 1 D, TRANSPLACENTAL
     Route: 064
     Dates: start: 20120509, end: 20120629
  2. FOLIO ( FOLIO) [Concomitant]

REACTIONS (5)
  - Foetal exposure during pregnancy [None]
  - Foetal exposure during pregnancy [None]
  - Cardiac murmur [None]
  - Atrial septal defect [None]
  - Pulmonary valve stenosis [None]
